FAERS Safety Report 21099085 (Version 1)
Quarter: 2022Q3

REPORT INFORMATION
  Report Type: Spontaneous
  Country: US (occurrence: None)
  Receive Date: 20220719
  Receipt Date: 20220719
  Transmission Date: 20221027
  Serious: Yes (Other)
  Sender: FDA-Public Use
  Company Number: None

PATIENT
  Age: 39 Year
  Sex: Female
  Weight: 66.15 kg

DRUGS (3)
  1. PAXLOVID [Suspect]
     Active Substance: NIRMATRELVIR\RITONAVIR
     Indication: COVID-19
     Dosage: OTHER QUANTITY : 30 TABLET(S);?FREQUENCY : TWICE A DAY;?
     Route: 048
     Dates: start: 20220705, end: 20220709
  2. HUMALOG [Concomitant]
  3. DEVICE [Concomitant]
     Active Substance: DEVICE

REACTIONS (2)
  - Blood glucose decreased [None]
  - Alopecia [None]

NARRATIVE: CASE EVENT DATE: 20220706
